FAERS Safety Report 8715201 (Version 2)
Quarter: 2012Q4

REPORT INFORMATION
  Report Type: 
  Country: US (occurrence: US)
  Receive Date: 20120809
  Receipt Date: 20120918
  Transmission Date: 20130627
  Serious: Yes (Other)
  Sender: FDA-Public Use
  Company Number: US-PFIZER INC-2012191779

PATIENT
  Age: 45 Year
  Sex: Female
  Weight: 64.4 kg

DRUGS (6)
  1. LYRICA [Suspect]
     Indication: FIBROMYALGIA
     Dosage: 150 mg, 2x/day
     Route: 048
     Dates: start: 2009
  2. LEVOTHYROXINE [Concomitant]
     Indication: THYROID DISORDER
     Dosage: 100 ug, daily
  3. ATIVAN [Concomitant]
     Dosage: 1 mg, daily
  4. LORTAB [Concomitant]
     Dosage: UNK, daily
  5. METHADONE [Concomitant]
     Dosage: 20 mg, 4x/day
  6. SOMA [Concomitant]
     Indication: MUSCLE RELAXANT THERAPY
     Dosage: UNK,daily

REACTIONS (1)
  - Bladder prolapse [Not Recovered/Not Resolved]
